FAERS Safety Report 9435532 (Version 1)
Quarter: 2013Q3

REPORT INFORMATION
  Report Type: Spontaneous
  Country: US (occurrence: None)
  Receive Date: 20130730
  Receipt Date: 20130730
  Transmission Date: 20140515
  Serious: Yes (Disabling, Other)
  Sender: FDA-Public Use
  Company Number: 1307-942

PATIENT
  Age: 85 Year
  Sex: Female

DRUGS (9)
  1. EYLEA [Suspect]
     Indication: AGE-RELATED MACULAR DEGENERATION
     Dosage: 2 MG, 1 IN 5 WK, INTRAVITREAL
     Dates: start: 20130715
  2. LIPITOR (ATORVASTATIN CALCIUM) [Concomitant]
  3. SYNTHROID (LEVOTHYROXINE SODIUM) [Concomitant]
  4. SPIRONOLACTONE ( SPIRONOLACTONE ) [Concomitant]
  5. HYDROCHLOROTHIAZIDE (HYDROCHLOROTHIAZIDE ) [Concomitant]
  6. MANOGEL (ALUM-V) [Concomitant]
  7. VITAMINS (VITAMINS NOS) [Concomitant]
  8. XANAX (ALPRAZOLAM) [Concomitant]
  9. CLARITIN (GLICLAZIDE) [Concomitant]

REACTIONS (5)
  - Vitreous floaters [None]
  - Vitritis [None]
  - Visual acuity reduced [None]
  - Eye pain [None]
  - Anterior chamber inflammation [None]
